FAERS Safety Report 7458619-X (Version None)
Quarter: 2011Q2

REPORT INFORMATION
  Report Type: 
  Country: None (occurrence: None)
  Receive Date: 20110504
  Receipt Date: 20110421
  Transmission Date: 20111010
  Serious: Yes (Hospitalization)
  Sender: FDA-Public Use
  Company Number: DE-ELI_LILLY_AND_COMPANY-DE201104006137

PATIENT
  Sex: Female

DRUGS (8)
  1. DIGITOXIN TAB [Concomitant]
     Dosage: UNK
  2. BELOC [Concomitant]
     Dosage: UNK
  3. CYMBALTA [Suspect]
     Indication: DEPRESSION
     Dosage: 30 MG, UNK
     Route: 048
     Dates: start: 20110329, end: 20110407
  4. RISPERDAL [Concomitant]
     Dosage: UNK
  5. L-THYROX [Concomitant]
     Dosage: UNK
  6. PULMICORT [Concomitant]
     Dosage: UNK
  7. ASPIRIN [Concomitant]
     Dosage: UNK
  8. PANTOZOL [Concomitant]
     Dosage: UNK

REACTIONS (3)
  - APATHY [None]
  - DEHYDRATION [None]
  - DIET REFUSAL [None]
